FAERS Safety Report 16361307 (Version 1)
Quarter: 2019Q3

REPORT INFORMATION
  Report Type: Spontaneous
  Country: US (occurrence: US)
  Receive Date: 20190524
  Receipt Date: 20190524
  Transmission Date: 20191004
  Serious: No
  Sender: FDA-Public Use
  Company Number: None

PATIENT
  Age: 36 Year
  Sex: Female
  Weight: 69.75 kg

DRUGS (8)
  1. RELPAX 40MG- [Concomitant]
  2. FIORICET 50-300-40 MG [Concomitant]
  3. FOLPLEX 2.2 2.2-25-0.5 MG [Concomitant]
  4. LEVONORGESTREL 20 MCG/24 HOURS [Concomitant]
  5. AIMOVIG [Suspect]
     Active Substance: ERENUMAB-AOOE
     Indication: MIGRAINE
     Dosage: ?          QUANTITY:1 INJECTION(S);OTHER FREQUENCY:1 INJECTION/28 DAY;?
     Route: 058
     Dates: start: 20190419
  6. AIMOVIG 70MG/ML- [Concomitant]
  7. MECLIZINE 25 MG- [Concomitant]
  8. PROBIOTIC [Concomitant]
     Active Substance: PROBIOTICS NOS

REACTIONS (1)
  - Alopecia [None]

NARRATIVE: CASE EVENT DATE: 20190520
